FAERS Safety Report 6854635-7 (Version None)
Quarter: 2010Q3

REPORT INFORMATION
  Report Type: 
  Country: None (occurrence: None)
  Receive Date: 20100717
  Receipt Date: 20080216
  Transmission Date: 20110219
  Serious: Yes (Other)
  Sender: FDA-Public Use
  Company Number: US-PFIZER INC-2007106154

PATIENT
  Sex: Female
  Weight: 79.545 kg

DRUGS (3)
  1. CHANTIX [Suspect]
     Indication: SMOKING CESSATION THERAPY
     Dates: start: 20071001
  2. LAMICTAL [Concomitant]
  3. SEROQUEL [Concomitant]

REACTIONS (6)
  - AGITATION [None]
  - ANXIETY [None]
  - DEPRESSION [None]
  - MYALGIA [None]
  - SUICIDAL IDEATION [None]
  - THINKING ABNORMAL [None]
